FAERS Safety Report 12432462 (Version 1)
Quarter: 2016Q2

REPORT INFORMATION
  Report Type: Report from Study
  Country: US (occurrence: US)
  Receive Date: 20160603
  Receipt Date: 20160603
  Transmission Date: 20160815
  Serious: Yes (Other)
  Sender: FDA-Public Use
  Company Number: US-ROCHE-1766883

PATIENT

DRUGS (3)
  1. TEMSIROLIMUS [Suspect]
     Active Substance: TEMSIROLIMUS
     Indication: NEOPLASM
     Route: 042
  2. BEVACIZUMAB [Suspect]
     Active Substance: BEVACIZUMAB
     Indication: NEOPLASM
     Route: 042
  3. CETUXIMAB [Suspect]
     Active Substance: CETUXIMAB
     Indication: NEOPLASM
     Route: 042

REACTIONS (15)
  - Infusion related reaction [Unknown]
  - Neutropenia [Unknown]
  - Hypophosphataemia [Unknown]
  - Fatigue [Unknown]
  - Hyperkalaemia [Unknown]
  - Aspartate aminotransferase increased [Unknown]
  - Mucosal inflammation [Unknown]
  - Anaemia [Unknown]
  - Glossitis [Unknown]
  - Hypokalaemia [Unknown]
  - Leukopenia [Unknown]
  - Hyperglycaemia [Unknown]
  - Gastric perforation [Unknown]
  - Vomiting [Unknown]
  - Headache [Unknown]
